FAERS Safety Report 6611349-6 (Version None)
Quarter: 2010Q1

REPORT INFORMATION
  Report Type: 
  Country: None (occurrence: None)
  Receive Date: 20100301
  Receipt Date: 20100301
  Transmission Date: 20100710
  Serious: Yes (Death)
  Sender: FDA-Public Use
  Company Number: None

PATIENT
  Sex: Female

DRUGS (1)
  1. HEPARIN [Suspect]
     Indication: UTERINE CANCER
     Dosage: 100MG AS DIRECTED SUBQ
     Route: 058
     Dates: start: 20100120, end: 20100212

REACTIONS (1)
  - DEATH [None]
